FAERS Safety Report 24120982 (Version 4)
Quarter: 2024Q3

REPORT INFORMATION
  Report Type: Spontaneous
  Country: US (occurrence: US)
  Receive Date: 20240722
  Receipt Date: 20240827
  Transmission Date: 20241017
  Serious: No
  Sender: PFIZER
  Company Number: US-PFIZER INC-202400215344

PATIENT
  Age: 44 Year
  Sex: Female

DRUGS (2)
  1. LITFULO [Suspect]
     Active Substance: RITLECITINIB TOSYLATE
     Indication: Alopecia
     Dosage: 50 MG, DAILY
     Route: 048
     Dates: start: 20240521
  2. NUTRAFOL [Concomitant]
     Indication: Alopecia
     Dosage: UNK

REACTIONS (3)
  - Back pain [Unknown]
  - Muscle spasms [Unknown]
  - Acne [Unknown]
